FAERS Safety Report 6853649-0 (Version None)
Quarter: 2010Q3

REPORT INFORMATION
  Report Type: 
  Country: None (occurrence: None)
  Receive Date: 20100717
  Receipt Date: 20071213
  Transmission Date: 20110219
  Serious: No
  Sender: FDA-Public Use
  Company Number: US-PFIZER INC-2007106114

PATIENT
  Sex: Female
  Weight: 60 kg

DRUGS (4)
  1. CHANTIX [Suspect]
     Indication: SMOKING CESSATION THERAPY
     Route: 048
     Dates: start: 20071207
  2. ALL OTHER THERAPEUTIC PRODUCTS [Concomitant]
     Dates: start: 19920101
  3. ALL OTHER THERAPEUTIC PRODUCTS [Concomitant]
     Dates: start: 19870101
  4. VITAMINS [Concomitant]

REACTIONS (4)
  - NAUSEA [None]
  - PRURITUS GENERALISED [None]
  - RASH [None]
  - VOMITING [None]
